FAERS Safety Report 8248249-4 (Version None)
Quarter: 2012Q1

REPORT INFORMATION
  Report Type: 
  Country: None (occurrence: None)
  Receive Date: 20120330
  Receipt Date: 20120320
  Transmission Date: 20120608
  Serious: Yes (Hospitalization)
  Sender: FDA-Public Use
  Company Number: FR-ROCHE-1050985

PATIENT
  Sex: Male
  Weight: 68 kg

DRUGS (15)
  1. AVASTIN [Suspect]
     Dates: start: 20120126
  2. PEMETREXED [Concomitant]
     Dates: start: 20120105
  3. LEVOFLOXACIN [Concomitant]
     Dates: start: 20120201
  4. MORPHINE SULFATE [Concomitant]
     Dates: start: 20120112
  5. PACLITAXEL [Suspect]
     Indication: NON-SMALL CELL LUNG CANCER
     Dosage: LAST DOSE: 17/MAY/2011
     Route: 042
     Dates: start: 20110201
  6. AVASTIN [Suspect]
     Indication: NON-SMALL CELL LUNG CANCER
     Route: 042
     Dates: start: 20110201
  7. ACIDE FOLIQUE [Concomitant]
     Dates: start: 20111226
  8. FORLAX (FRANCE) [Concomitant]
     Dates: start: 20110623
  9. PEMETREXED [Concomitant]
     Dates: start: 20120126
  10. PROPRANOLOL [Concomitant]
     Dates: start: 20110927
  11. POTASSIUM CHLORIDE [Concomitant]
     Dates: start: 20120101
  12. FENTANYL [Concomitant]
     Dates: start: 20120124
  13. AVASTIN [Suspect]
     Dates: start: 20120105
  14. CARBOPLATIN [Suspect]
     Indication: NON-SMALL CELL LUNG CANCER
     Dosage: LAST DOSE: 17/MAY/2011, DOSE: 6AUC
     Route: 042
     Dates: start: 20110201
  15. FUNGIZONE [Concomitant]
     Dates: start: 20120116

REACTIONS (1)
  - RENAL DISORDER [None]
